FAERS Safety Report 20957086 (Version 5)
Quarter: 2024Q4

REPORT INFORMATION
  Report Type: Spontaneous
  Country: DE (occurrence: DE)
  Receive Date: 20220614
  Receipt Date: 20241231
  Transmission Date: 20250115
  Serious: Yes (Hospitalization, Other)
  Sender: RECKITT BENCKISER
  Company Number: DE-Indivior Limited-INDV-121940-2018

PATIENT

DRUGS (29)
  1. BUPRENORPHINE [Suspect]
     Active Substance: BUPRENORPHINE
     Indication: Trigeminal neuralgia
     Dosage: UNK
     Route: 065
     Dates: start: 20190805
  2. OCREVUS [Suspect]
     Active Substance: OCRELIZUMAB
     Indication: Secondary progressive multiple sclerosis
     Dosage: 300 MILLIGRAM, UNKNOWN
     Route: 042
     Dates: start: 20180910, end: 201809
  3. OCREVUS [Suspect]
     Active Substance: OCRELIZUMAB
     Dosage: 300 MILLIGRAM, UNKNOWN
     Route: 042
     Dates: start: 20180920, end: 20180920
  4. OCREVUS [Suspect]
     Active Substance: OCRELIZUMAB
     Dosage: 300 MILLIGRAM, UNKNOWN
     Route: 042
     Dates: start: 20181009, end: 201810
  5. OCREVUS [Suspect]
     Active Substance: OCRELIZUMAB
     Dosage: 600 MILLIGRAM (SOLUTION FOR INFUSION)
     Route: 042
     Dates: start: 20180920, end: 20180920
  6. OCREVUS [Suspect]
     Active Substance: OCRELIZUMAB
     Dosage: 600 MILLIGRAM, UNKNOWN
     Route: 042
     Dates: start: 20190508
  7. OCREVUS [Suspect]
     Active Substance: OCRELIZUMAB
     Dosage: 600 MILLIGRAM, UNKNOWN
     Route: 042
     Dates: start: 20190526
  8. OCREVUS [Suspect]
     Active Substance: OCRELIZUMAB
     Dosage: 600 MILLIGRAM, UNKNOWN
     Route: 042
     Dates: start: 20200526
  9. OCREVUS [Suspect]
     Active Substance: OCRELIZUMAB
     Dosage: 600 MILLIGRAM, UNKNOWN
     Route: 042
     Dates: start: 20201201
  10. OCREVUS [Suspect]
     Active Substance: OCRELIZUMAB
     Dosage: 600 MILLIGRAM
     Route: 042
  11. DALFAMPRIDINE [Suspect]
     Active Substance: DALFAMPRIDINE
     Indication: Product used for unknown indication
     Dosage: UNK (PROLONGED-RELEASE TABLET)
     Route: 065
     Dates: start: 20190617, end: 20190618
  12. DALFAMPRIDINE [Suspect]
     Active Substance: DALFAMPRIDINE
     Dosage: 2 PROLONGED-RELEASE TABLET
     Route: 065
     Dates: start: 20190617
  13. BACLOFEN [Concomitant]
     Active Substance: BACLOFEN
     Indication: Product used for unknown indication
     Dosage: 120 MILLIGRAM, QID (HALF IN THE MORNING, HALF IN AFTERNOON ONE IN THE EVENING AND ONE IN THE NIGHT)
     Route: 065
  14. BACLOFEN [Concomitant]
     Active Substance: BACLOFEN
     Dosage: 15 MILLIGRAM, QID (ONE IN THE MORNING, ONE IN AFTERNOON TWO IN THE EVENING AND TWO IN THE NIGHT)
     Route: 065
  15. BACLOFEN [Concomitant]
     Active Substance: BACLOFEN
     Dosage: 30 MILLIGRAM, QID (HALF IN MORNING, HALF  IN AFTERNOON, ONE IN EVENING, ONE AT NIGHT)
     Route: 065
  16. BACLOFEN [Concomitant]
     Active Substance: BACLOFEN
     Dosage: 60 MILLIGRAM, QID (ONE IN MORNING , TWO IN AFTERNOON, TWO IN EVENING, ONE AT NIGHT)
     Route: 065
  17. DRONABINOL [Concomitant]
     Active Substance: DRONABINOL
     Indication: Product used for unknown indication
     Dosage: 20000 INTERNATIONAL UNIT, BID (9-11 GTT (ONE IN ONE TIME) AS NECESSARY)
     Route: 065
  18. DRONABINOL [Concomitant]
     Active Substance: DRONABINOL
     Dosage: 20000 INTERNATIONAL UNIT, BID (12 DROPS AT NIGHT)
     Route: 065
  19. DRONABINOL [Concomitant]
     Active Substance: DRONABINOL
     Dosage: 9-11GTT (ONE IN ONE TIME), AS NECESSARY
     Route: 065
  20. DIENOGEST\ESTRADIOL VALERATE [Concomitant]
     Active Substance: DIENOGEST\ESTRADIOL VALERATE
     Indication: Product used for unknown indication
     Dosage: 400 MILLIGRAM, UNKNOWN
     Route: 065
  21. DIENOGEST\ESTRADIOL VALERATE [Concomitant]
     Active Substance: DIENOGEST\ESTRADIOL VALERATE
     Dosage: 20000 INTERNATIONAL UNIT, BID
     Route: 065
  22. CARBAMAZEPINE [Concomitant]
     Active Substance: CARBAMAZEPINE
     Indication: Product used for unknown indication
     Dosage: 300 MILLIGRAM, QD
     Route: 065
  23. CARBAMAZEPINE [Concomitant]
     Active Substance: CARBAMAZEPINE
     Dosage: 100 MILLIGRAM, TID (EVERY 0.33 DAY)
     Route: 065
  24. CARBAMAZEPINE [Concomitant]
     Active Substance: CARBAMAZEPINE
     Dosage: 120 MILLIGRAM, QID (HALF IN THE MORNING, HALF IN AFTERNOON, ONE IN THE EVENING AND ONE IN THE NIGHT)
     Route: 065
  25. CARBAMAZEPINE [Concomitant]
     Active Substance: CARBAMAZEPINE
     Dosage: 30 MILLIGRAM, QID (HALF IN MORNING, HALF IN AFTERNOON, ONE IN EVENING, ONE AT NIGHT)
     Route: 065
  26. CHOLECALCIFEROL [Concomitant]
     Active Substance: CHOLECALCIFEROL
     Indication: Product used for unknown indication
     Dosage: 20000 INTERNATIONAL UNIT, Q2D
     Route: 065
  27. GABAPENTIN [Concomitant]
     Active Substance: GABAPENTIN
     Indication: Product used for unknown indication
     Dosage: 400 MILLIGRAM, UNKNOWN
     Route: 065
  28. GABAPENTIN [Concomitant]
     Active Substance: GABAPENTIN
     Dosage: 700 MILLIGRAM, QD
     Route: 065
  29. PREGABALIN [Concomitant]
     Active Substance: PREGABALIN
     Indication: Product used for unknown indication
     Dosage: 300 MILLIGRAM, QMO
     Route: 065

REACTIONS (18)
  - Herpes ophthalmic [Unknown]
  - Hypoacusis [Not Recovered/Not Resolved]
  - COVID-19 [Recovered/Resolved]
  - Vomiting [Recovered/Resolved]
  - Nausea [Recovered/Resolved]
  - Off label use [Unknown]
  - Dacryostenosis acquired [Not Recovered/Not Resolved]
  - Retinal scar [Recovered/Resolved]
  - Visual impairment [Unknown]
  - Anosmia [Not Recovered/Not Resolved]
  - Gait disturbance [Unknown]
  - Muscle spasticity [Not Recovered/Not Resolved]
  - Bone pain [Recovered/Resolved]
  - Hypoaesthesia [Not Recovered/Not Resolved]
  - Pain [Unknown]
  - Asthenia [Recovered/Resolved]
  - Fatigue [Unknown]
  - Chills [Recovered/Resolved]

NARRATIVE: CASE EVENT DATE: 20190805
